FAERS Safety Report 9610392 (Version 2)
Quarter: 2013Q4

REPORT INFORMATION
  Report Type: Spontaneous
  Country: US (occurrence: US)
  Receive Date: 20131009
  Receipt Date: 20131009
  Transmission Date: 20140711
  Serious: No
  Sender: FDA-Public Use
  Company Number: US-PURDUE-USA-2012-0096564

PATIENT
  Age: 59 Year
  Sex: Male

DRUGS (3)
  1. BUTRANS [Suspect]
     Indication: BACK PAIN
     Dosage: 10 MCG, UNK
     Route: 062
     Dates: start: 20121031, end: 20121116
  2. BUTRANS [Suspect]
     Indication: ARTHRALGIA
     Dosage: 20 MCG, UNK
     Route: 062
     Dates: start: 20121116, end: 20121118
  3. NORCO [Suspect]
     Indication: PAIN
     Dosage: 1 DF, UNK
     Route: 048

REACTIONS (6)
  - Dysstasia [Recovered/Resolved]
  - Dizziness [Recovered/Resolved]
  - Chest pain [Recovered/Resolved]
  - Discomfort [Recovered/Resolved]
  - Anxiety [Recovered/Resolved]
  - Inadequate analgesia [Recovered/Resolved]
